FAERS Safety Report 13235040 (Version 3)
Quarter: 2017Q1

REPORT INFORMATION
  Report Type: Spontaneous
  Country: JP (occurrence: JP)
  Receive Date: 20170215
  Receipt Date: 20170223
  Transmission Date: 20170428
  Serious: Yes (Other)
  Sender: FDA-Public Use
  Company Number: JP-PFIZER INC-2017062315

PATIENT
  Age: 40 Year
  Sex: Male

DRUGS (1)
  1. CHAMPIX 1MG [Suspect]
     Active Substance: VARENICLINE TARTRATE
     Dosage: 2 MG, DAILY
     Route: 048
     Dates: start: 20161201, end: 20170130

REACTIONS (4)
  - Vision blurred [Not Recovered/Not Resolved]
  - Choking sensation [Not Recovered/Not Resolved]
  - Nausea [Not Recovered/Not Resolved]
  - Mental disorder [Not Recovered/Not Resolved]

NARRATIVE: CASE EVENT DATE: 20170129
